FAERS Safety Report 16341432 (Version 2)
Quarter: 2019Q2

REPORT INFORMATION
  Report Type: Report from Study
  Country: US (occurrence: US)
  Receive Date: 20190522
  Receipt Date: 20190627
  Transmission Date: 20190711
  Serious: Yes (Hospitalization)
  Sender: FDA-Public Use
  Company Number: PHEH2019US021051

PATIENT
  Sex: Female

DRUGS (3)
  1. POTASSIUM SUPPLEMENTS [Concomitant]
     Indication: PRODUCT USED FOR UNKNOWN INDICATION
     Route: 065
  2. GILENYA [Suspect]
     Active Substance: FINGOLIMOD HYDROCHLORIDE
     Indication: MULTIPLE SCLEROSIS
     Dosage: 0.5 MG, QD
     Route: 048
     Dates: start: 20190207, end: 20190613
  3. ASA [Concomitant]
     Active Substance: ASPIRIN
     Indication: PRODUCT USED FOR UNKNOWN INDICATION
     Route: 065

REACTIONS (7)
  - Arrhythmia [Unknown]
  - Headache [Unknown]
  - Tachycardia [Unknown]
  - Hypertension [Recovering/Resolving]
  - Pyrexia [Recovered/Resolved]
  - Musculoskeletal chest pain [Recovering/Resolving]
  - Halo vision [Recovering/Resolving]
